FAERS Safety Report 5242915-0 (Version None)
Quarter: 2007Q1

REPORT INFORMATION
  Report Type: 
  Country: None (occurrence: None)
  Receive Date: 20070214
  Receipt Date: 20070130
  Transmission Date: 20070707
  Serious: Yes (Hospitalization)
  Sender: FDA-Public Use
  Company Number: 2006PV023472

PATIENT
  Age: 61 Year
  Sex: Female

DRUGS (14)
  1. BYETTA [Suspect]
     Indication: DIABETES MELLITUS NON-INSULIN-DEPENDENT
     Dosage: 10 MCG;BID;SC; 5 MCG;BID; SC
     Route: 058
     Dates: start: 20051130, end: 20060117
  2. BYETTA [Suspect]
     Indication: DIABETES MELLITUS NON-INSULIN-DEPENDENT
     Dosage: 10 MCG;BID;SC; 5 MCG;BID; SC
     Route: 058
     Dates: start: 20060118
  3. METOPROLOL SUCCINATE [Concomitant]
  4. ZETIA [Concomitant]
  5. PROTONIX [Concomitant]
  6. PLAVIX [Concomitant]
  7. PROZAC [Concomitant]
  8. ASPIRIN [Concomitant]
  9. XANAX [Concomitant]
  10. LIPITOR [Concomitant]
  11. BONIVA [Concomitant]
  12. NITROQUICK [Concomitant]
  13. ANTIVERT [Concomitant]
  14. VITAMIN CAP [Concomitant]

REACTIONS (9)
  - BLOOD GLUCOSE DECREASED [None]
  - BLOOD GLUCOSE INCREASED [None]
  - CHILLS [None]
  - DYSPEPSIA [None]
  - HYPERHIDROSIS [None]
  - NON-CARDIAC CHEST PAIN [None]
  - PHARYNGOLARYNGEAL PAIN [None]
  - TREMOR [None]
  - UPPER RESPIRATORY TRACT INFECTION [None]
